FAERS Safety Report 21995591 (Version 1)
Quarter: 2023Q1

REPORT INFORMATION
  Report Type: Spontaneous
  Country: US (occurrence: None)
  Receive Date: 20230214
  Receipt Date: 20230214
  Transmission Date: 20230417
  Serious: Yes (Other)
  Sender: FDA-Public Use
  Company Number: None

PATIENT
  Age: 70 Year
  Sex: Female
  Weight: 79.65 kg

DRUGS (1)
  1. NUCALA [Suspect]
     Active Substance: MEPOLIZUMAB
     Indication: Asthma
     Dosage: OTHER FREQUENCY : EVERY 28 DAYS;?OTHER ROUTE : SUBQ AUTO INJECTOR;?
     Route: 050

REACTIONS (4)
  - Dyspnoea [None]
  - Dizziness [None]
  - Hypertension [None]
  - Chest discomfort [None]

NARRATIVE: CASE EVENT DATE: 20230205
